FAERS Safety Report 8618889 (Version 4)
Quarter: 2012Q4

REPORT INFORMATION
  Report Type: 
  Country: US (occurrence: US)
  Receive Date: 20120618
  Receipt Date: 20121210
  Transmission Date: 20130627
  Serious: Yes (Hospitalization)
  Sender: FDA-Public Use
  Company Number: US-BAYER-2012-058557

PATIENT
  Age: 29 Year
  Sex: Female
  Weight: 113.38 kg

DRUGS (5)
  1. YAZ [Suspect]
     Indication: CONTRACEPTION
     Dosage: UNK
     Dates: start: 201004, end: 20100825
  2. YAZ [Suspect]
     Indication: CONTRACEPTION
     Dosage: UNK
     Dates: start: 201004, end: 201006
  3. IBUPROFEN [Concomitant]
     Dosage: UNK
     Dates: start: 20100602
  4. IBUPROFEN [Concomitant]
     Dosage: UNK
     Dates: start: 20100610
  5. IRON PREPARATIONS [Concomitant]
     Dosage: UNK
     Dates: start: 20100610

REACTIONS (11)
  - Pulmonary embolism [Recovered/Resolved]
  - Chest pain [Recovered/Resolved]
  - Nausea [Recovered/Resolved]
  - Dyspnoea [Recovered/Resolved]
  - Vomiting [Recovered/Resolved]
  - Pain [None]
  - Injury [Recovered/Resolved]
  - General physical health deterioration [Recovered/Resolved]
  - Anxiety [None]
  - Emotional distress [None]
  - Anhedonia [None]
